FAERS Safety Report 15202776 (Version 2)
Quarter: 2018Q3

REPORT INFORMATION
  Report Type: Spontaneous
  Country: CH (occurrence: CH)
  Receive Date: 20180726
  Receipt Date: 20180917
  Transmission Date: 20181010
  Serious: Yes (Death)
  Sender: FDA-Public Use
  Company Number: CH-ACTELION-A-CH2018-175990

PATIENT
  Age: 56 Year

DRUGS (1)
  1. TRACLEER [Suspect]
     Active Substance: BOSENTAN
     Indication: PULMONARY HYPERTENSION
     Route: 048

REACTIONS (3)
  - Cardiac failure chronic [Fatal]
  - Right ventricular failure [Fatal]
  - Lung infection [Unknown]
